FAERS Safety Report 8552673-X (Version None)
Quarter: 2012Q3

REPORT INFORMATION
  Report Type: 
  Country: None (occurrence: None)
  Receive Date: 20120731
  Receipt Date: 20120724
  Transmission Date: 20120928
  Serious: No
  Sender: FDA-Public Use
  Company Number: US-PFIZER INC-2012105303

PATIENT
  Sex: Female
  Weight: 66.667 kg

DRUGS (4)
  1. TRUSOPT [Concomitant]
     Dosage: UNK, 1X/DAY
     Route: 031
  2. LOSARTAN [Concomitant]
     Indication: HYPERTENSION
     Dosage: UNK
  3. XALATAN [Suspect]
     Indication: INTRAOCULAR PRESSURE TEST ABNORMAL
     Dosage: ONE DROP IN EACH EYE, 1X/DAY
     Route: 031
  4. GLIMEPIRIDE [Concomitant]
     Indication: DIABETES MELLITUS
     Dosage: UNK

REACTIONS (1)
  - DEPRESSION [None]
